FAERS Safety Report 18209397 (Version 1)
Quarter: 2020Q3

REPORT INFORMATION
  Report Type: Spontaneous
  Country: BR (occurrence: BR)
  Receive Date: 20200828
  Receipt Date: 20200828
  Transmission Date: 20201103
  Serious: Yes (Other)
  Sender: FDA-Public Use
  Company Number: BR-PFIZER INC-2020329831

PATIENT
  Age: 18 Year
  Sex: Male

DRUGS (4)
  1. SILDENAFIL CITRATE. [Suspect]
     Active Substance: SILDENAFIL CITRATE
     Dosage: SOMETIMES HALF A TABLET
  2. SILDENAFIL CITRATE. [Suspect]
     Active Substance: SILDENAFIL CITRATE
     Dosage: 150 MG AT ONCE
  3. SILDENAFIL CITRATE. [Suspect]
     Active Substance: SILDENAFIL CITRATE
     Dosage: 100 MG
  4. SILDENAFIL CITRATE. [Suspect]
     Active Substance: SILDENAFIL CITRATE
     Indication: ERECTILE DYSFUNCTION
     Dosage: 50 MG

REACTIONS (7)
  - Flushing [Unknown]
  - Headache [Unknown]
  - Prescription drug used without a prescription [Unknown]
  - Drug ineffective [Unknown]
  - Nasal congestion [Unknown]
  - Intentional product use issue [Unknown]
  - Drug dependence [Unknown]
